FAERS Safety Report 4480816-6 (Version None)
Quarter: 2004Q4

REPORT INFORMATION
  Report Type: 
  Country: None (occurrence: None)
  Receive Date: 20041019
  Receipt Date: 20041008
  Transmission Date: 20050328
  Serious: Yes (Life-Threatening)
  Sender: FDA-Public Use
  Company Number: 209543

PATIENT
  Age: 52 Year
  Sex: Female
  Weight: 65.3 kg

DRUGS (6)
  1. NUTROPIN AQ [Suspect]
     Indication: GROWTH HORMONE DEFICIENCY
     Dosage: 0.9 MG, QD, SUBCUTANEOUS
     Route: 058
     Dates: start: 20001201, end: 20040908
  2. ZYRTEC [Concomitant]
  3. THYROID TAB [Concomitant]
  4. GLUCOPHAGE XR [Concomitant]
  5. STRATTERA (TOMEXETINE) [Concomitant]
  6. SINGULAIR [Concomitant]

REACTIONS (1)
  - TONGUE NEOPLASM MALIGNANT STAGE UNSPECIFIED [None]
